FAERS Safety Report 7563766-8 (Version None)
Quarter: 2011Q2

REPORT INFORMATION
  Report Type: 
  Country: None (occurrence: None)
  Receive Date: 20110622
  Receipt Date: 20110615
  Transmission Date: 20111010
  Serious: Yes (Hospitalization)
  Sender: FDA-Public Use
  Company Number: US-JNJFOC-20110607935

PATIENT
  Sex: Female
  Weight: 61.24 kg

DRUGS (5)
  1. METHADONE HCL [Concomitant]
     Indication: PAIN
     Route: 048
     Dates: start: 20080101
  2. FENTANYL-100 [Suspect]
     Route: 062
     Dates: start: 20070101, end: 20070101
  3. FENTANYL-100 [Suspect]
     Indication: BACK PAIN
     Route: 062
     Dates: start: 20080101
  4. FENTANYL-100 [Suspect]
     Dosage: NDC: 0781-7241-55
     Route: 062
  5. VICODIN [Concomitant]
     Indication: PAIN
     Route: 048
     Dates: start: 20070101, end: 20070101

REACTIONS (6)
  - APPLICATION SITE RASH [None]
  - APPLICATION SITE SWELLING [None]
  - PRODUCT ADHESION ISSUE [None]
  - VOMITING [None]
  - MALAISE [None]
  - SPINAL OPERATION [None]
